FAERS Safety Report 20040352 (Version 1)
Quarter: 2021Q4

REPORT INFORMATION
  Report Type: Spontaneous
  Country: US (occurrence: None)
  Receive Date: 20211104
  Receipt Date: 20211104
  Transmission Date: 20220303
  Serious: Yes (Hospitalization)
  Sender: FDA-Public Use
  Company Number: None

PATIENT
  Age: 68 Year
  Sex: Male
  Weight: 99 kg

DRUGS (2)
  1. CISPLATIN [Suspect]
     Active Substance: CISPLATIN
     Indication: Product used for unknown indication
     Dates: end: 20210819
  2. GEMCITABINE HYDROCHLORIDE [Suspect]
     Active Substance: GEMCITABINE HYDROCHLORIDE
     Indication: Product used for unknown indication
     Dates: end: 20210819

REACTIONS (8)
  - Diverticulitis [None]
  - Nausea [None]
  - Vomiting [None]
  - Abdominal pain [None]
  - Hypertension [None]
  - Tachycardia [None]
  - Treatment noncompliance [None]
  - Poor venous access [None]

NARRATIVE: CASE EVENT DATE: 20210824
